FAERS Safety Report 9226140 (Version 2)
Quarter: 2013Q2

REPORT INFORMATION
  Report Type: Spontaneous
  Country: DE (occurrence: DE)
  Receive Date: 20130411
  Receipt Date: 20130517
  Transmission Date: 20140414
  Serious: Yes (Other)
  Sender: FDA-Public Use
  Company Number: DE-ABBOTT-13P-062-1073994-00

PATIENT
  Age: 27 Year
  Sex: Male

DRUGS (5)
  1. HUMIRA [Suspect]
     Indication: CROHN^S DISEASE
     Route: 058
     Dates: start: 20090129, end: 20110930
  2. HUMIRA [Suspect]
     Route: 058
     Dates: start: 20110930, end: 201302
  3. HUMIRA [Suspect]
     Route: 058
     Dates: start: 201302, end: 201304
  4. PANTOPRAZOLE [Concomitant]
     Indication: PRODUCT USED FOR UNKNOWN INDICATION
     Dates: start: 2007
  5. PAROXETIN [Concomitant]
     Indication: PRODUCT USED FOR UNKNOWN INDICATION
     Dates: start: 2009

REACTIONS (1)
  - Renal failure [Unknown]
